FAERS Safety Report 6628351-0 (Version None)
Quarter: 2010Q1

REPORT INFORMATION
  Report Type: 
  Country: None (occurrence: None)
  Receive Date: 20100311
  Receipt Date: 20100226
  Transmission Date: 20100710
  Serious: Yes (Death, Hospitalization)
  Sender: FDA-Public Use
  Company Number: GR-ROCHE-684640

PATIENT
  Sex: Female
  Weight: 51.3 kg

DRUGS (20)
  1. MIRCERA [Suspect]
     Dosage: FORM: PREFILLED SYRINGES
     Route: 058
     Dates: start: 20080701, end: 20100129
  2. NEORECORMON [Concomitant]
  3. TITRALAC [Concomitant]
  4. RENAGEL [Concomitant]
  5. ONE-ALPHA [Concomitant]
  6. CAPOTEN [Concomitant]
  7. NORVASC [Concomitant]
  8. DILTIAZEM HCL [Concomitant]
  9. DIGOXIN [Concomitant]
  10. ANGORON [Concomitant]
  11. DESFERAL [Concomitant]
  12. PLAVIX [Concomitant]
  13. SUPERAMIN [Concomitant]
  14. FILICINE [Concomitant]
  15. BLOOD TRANSFUSION [Concomitant]
  16. ACTRAPID [Concomitant]
  17. ZESTRIL [Concomitant]
  18. CARVEPEN [Concomitant]
  19. SALOSPIR [Concomitant]
  20. CERNEVIT-12 [Concomitant]

REACTIONS (9)
  - ABDOMINAL PAIN [None]
  - CEREBROVASCULAR ACCIDENT [None]
  - ERYTHROBLAST COUNT INCREASED [None]
  - FACIAL PARESIS [None]
  - HAEMATOCRIT DECREASED [None]
  - HEADACHE [None]
  - HERPES ZOSTER [None]
  - PLATELET COUNT DECREASED [None]
  - WHITE BLOOD CELL COUNT INCREASED [None]
